FAERS Safety Report 5724042-9 (Version None)
Quarter: 2008Q2

REPORT INFORMATION
  Report Type: 
  Country: None (occurrence: None)
  Receive Date: 20080430
  Receipt Date: 20080424
  Transmission Date: 20081010
  Serious: Yes (Life-Threatening, Hospitalization)
  Sender: FDA-Public Use
  Company Number: BR-BOEHRINGER INGELHEIM GMBH, GERMANY-2008-BP-06507RO

PATIENT
  Age: 55 Year
  Sex: Female

DRUGS (8)
  1. METHADONE HCL [Suspect]
     Indication: PELVIC PAIN
     Route: 042
  2. METHADONE HCL [Suspect]
     Route: 042
  3. NALOXONE [Concomitant]
     Indication: MIOSIS
     Route: 042
  4. NALOXONE [Concomitant]
     Route: 042
  5. OXYGEN [Concomitant]
     Indication: CARDIAC ARREST
  6. SODIUM CHLORIDE [Concomitant]
     Indication: HYPOVOLAEMIA
     Route: 042
  7. SODIUM CHLORIDE [Concomitant]
     Route: 042
  8. EPINEPHRINE [Concomitant]
     Indication: CARDIAC ARREST
     Route: 042

REACTIONS (7)
  - AGITATION [None]
  - ANTERIOR SPINAL ARTERY SYNDROME [None]
  - CARDIAC ARREST [None]
  - DRUG TOXICITY [None]
  - ELECTROMECHANICAL DISSOCIATION [None]
  - MIOSIS [None]
  - PARAPARESIS [None]
